FAERS Safety Report 11744047 (Version 3)
Quarter: 2016Q3

REPORT INFORMATION
  Report Type: Spontaneous
  Country: US (occurrence: US)
  Receive Date: 20151116
  Receipt Date: 20160823
  Transmission Date: 20161109
  Serious: Yes (Congenital Anomaly, Other)
  Sender: FDA-Public Use
  Company Number: PHEH2015US023593

PATIENT
  Sex: Female

DRUGS (2)
  1. ONDANSETRON HYDROCHLORIDE. [Suspect]
     Active Substance: ONDANSETRON HYDROCHLORIDE
     Indication: FOETAL EXPOSURE DURING PREGNANCY
     Dosage: MOTHER DOSE: 4 MG TID
     Route: 064
  2. ZOFRAN ODT [Suspect]
     Active Substance: ONDANSETRON HYDROCHLORIDE
     Indication: FOETAL EXPOSURE DURING PREGNANCY
     Dosage: MOTHER DOSE: 8 MG QD
     Route: 064

REACTIONS (18)
  - Postoperative wound complication [Unknown]
  - Anhedonia [Unknown]
  - Anxiety [Unknown]
  - Talipes [Unknown]
  - Congenital anomaly [Unknown]
  - Syndactyly [Unknown]
  - Peroneal nerve palsy [Unknown]
  - Hepatitis B [Unknown]
  - Emotional distress [Unknown]
  - Amniotic band syndrome [Unknown]
  - Limb deformity [Unknown]
  - Skin graft failure [Unknown]
  - Pain [Unknown]
  - Limb asymmetry [Unknown]
  - Limb hypoplasia congenital [Unknown]
  - Limb malformation [Unknown]
  - Hand deformity [Unknown]
  - Foetal exposure during pregnancy [Unknown]
